FAERS Safety Report 21562457 (Version 1)
Quarter: 2022Q4

REPORT INFORMATION
  Report Type: Report from Study
  Country: US (occurrence: US)
  Receive Date: 20221107
  Receipt Date: 20221107
  Transmission Date: 20230113
  Serious: No
  Sender: FDA-Public Use
  Company Number: US-ABBVIE-4133687

PATIENT
  Age: 74 Year
  Sex: Female

DRUGS (1)
  1. HUMIRA [Suspect]
     Active Substance: ADALIMUMAB
     Indication: Colitis ulcerative

REACTIONS (4)
  - Staphylococcal infection [Recovering/Resolving]
  - COVID-19 [Recovered/Resolved]
  - Sinus disorder [Unknown]
  - Illness [Unknown]

NARRATIVE: CASE EVENT DATE: 20211001
